FAERS Safety Report 5134498-0 (Version None)
Quarter: 2006Q4

REPORT INFORMATION
  Report Type: 
  Country: None (occurrence: None)
  Receive Date: 20061023
  Receipt Date: 20061023
  Transmission Date: 20070319
  Serious: Yes (Other)
  Sender: FDA-Public Use
  Company Number: None

PATIENT
  Age: 70 Year
  Sex: Female

DRUGS (2)
  1. METOPROLOL TARTRATE [Suspect]
  2. ATENOLOL [Suspect]

REACTIONS (3)
  - CRYING [None]
  - DEPRESSION [None]
  - MUSCULAR WEAKNESS [None]
